FAERS Safety Report 8026491-5 (Version None)
Quarter: 2012Q1

REPORT INFORMATION
  Report Type: 
  Country: None (occurrence: None)
  Receive Date: 20120105
  Receipt Date: 20111223
  Transmission Date: 20120608
  Serious: Yes (Death)
  Sender: FDA-Public Use
  Company Number: AU-MYLANLABS-2011S1026503

PATIENT

DRUGS (1)
  1. VALPROIC ACID [Suspect]
     Indication: ALPERS' DISEASE
     Route: 065

REACTIONS (4)
  - HEPATIC FAILURE [None]
  - HYPERKALAEMIA [None]
  - TOXICITY TO VARIOUS AGENTS [None]
  - CARDIAC ARREST [None]
